FAERS Safety Report 24667116 (Version 4)
Quarter: 2024Q4

REPORT INFORMATION
  Report Type: Spontaneous
  Country: US (occurrence: US)
  Receive Date: 20241126
  Receipt Date: 20241206
  Transmission Date: 20250115
  Serious: No
  Sender: PFIZER
  Company Number: US-PFIZER INC-2020228646

PATIENT
  Age: 73 Year

DRUGS (2)
  1. PREMARIN [Suspect]
     Active Substance: ESTROGENS, CONJUGATED
     Dosage: UNK, EVERY NIGHT FOR 2 WEEKS AND THEN GO 3 TIMES A WEEK
     Route: 067
  2. PREMARIN [Suspect]
     Active Substance: ESTROGENS, CONJUGATED
     Dosage: 0.5 G, DAILY

REACTIONS (4)
  - Vertigo [Unknown]
  - Product prescribing error [Unknown]
  - Headache [Unknown]
  - Off label use [Unknown]
